FAERS Safety Report 11369015 (Version 1)
Quarter: 2015Q3

REPORT INFORMATION
  Report Type: Report from Study
  Country: BR (occurrence: BR)
  Receive Date: 20150812
  Receipt Date: 20150812
  Transmission Date: 20151125
  Serious: Yes (Hospitalization)
  Sender: FDA-Public Use
  Company Number: PHHY2015BR095157

PATIENT
  Sex: Female
  Weight: 40 kg

DRUGS (1)
  1. ONBREZ BREEZHALER [Suspect]
     Active Substance: INDACATEROL
     Indication: LUNG DISORDER
     Dosage: UNK, BID
     Route: 065

REACTIONS (9)
  - Emphysema [Unknown]
  - Gastrointestinal disorder [Unknown]
  - Osteoporosis [Unknown]
  - Lung disorder [Unknown]
  - Gastrointestinal injury [Unknown]
  - Haemorrhage [Unknown]
  - Movement disorder [Unknown]
  - Weight decreased [Unknown]
  - Haematemesis [Unknown]
